FAERS Safety Report 4897684-0 (Version None)
Quarter: 2006Q1

REPORT INFORMATION
  Report Type: 
  Country: None (occurrence: None)
  Receive Date: 20060130
  Receipt Date: 20060130
  Transmission Date: 20060701
  Serious: No
  Sender: FDA-Public Use
  Company Number: None

PATIENT
  Age: 49 Year
  Sex: Female
  Weight: 81.6475 kg

DRUGS (1)
  1. PAXIL CR [Suspect]
     Indication: STRESS
     Dosage: 20 MG QD PO
     Route: 048
     Dates: start: 20010101, end: 20021231

REACTIONS (11)
  - ANGER [None]
  - DRUG WITHDRAWAL SYNDROME [None]
  - FEELING ABNORMAL [None]
  - HOMICIDAL IDEATION [None]
  - HYPOAESTHESIA [None]
  - MANIA [None]
  - PARAESTHESIA [None]
  - PSYCHIATRIC SYMPTOM [None]
  - RESPIRATORY RATE INCREASED [None]
  - SENSORY DISTURBANCE [None]
  - TRIGEMINAL NERVE DISORDER [None]
